FAERS Safety Report 22185287 (Version 2)
Quarter: 2023Q2

REPORT INFORMATION
  Report Type: Report from Study
  Country: BR (occurrence: BR)
  Receive Date: 20230407
  Receipt Date: 20230531
  Transmission Date: 20230722
  Serious: Yes (Other)
  Sender: FDA-Public Use
  Company Number: BR-002147023-NVSC2023BR024713

PATIENT
  Age: 37 Year
  Sex: Female

DRUGS (2)
  1. KISQALI [Suspect]
     Active Substance: RIBOCICLIB
     Indication: Breast cancer
     Dosage: 3 DOSAGE FORM (3 TABLET)
     Route: 065
  2. KISQALI [Suspect]
     Active Substance: RIBOCICLIB
     Dosage: 2 DOSAGE FORM (2 TABLET)
     Route: 065
     Dates: start: 20230126

REACTIONS (18)
  - Neoplasm malignant [Not Recovered/Not Resolved]
  - Metastasis [Unknown]
  - Hypoacusis [Unknown]
  - Decreased immune responsiveness [Recovered/Resolved]
  - Breast discharge [Recovering/Resolving]
  - Decreased immune responsiveness [Unknown]
  - Bone pain [Not Recovered/Not Resolved]
  - Dysarthria [Not Recovered/Not Resolved]
  - Musculoskeletal chest pain [Unknown]
  - Somnolence [Not Recovered/Not Resolved]
  - Retching [Unknown]
  - Pain [Unknown]
  - Chest pain [Unknown]
  - Lip dry [Unknown]
  - Malaise [Not Recovered/Not Resolved]
  - Insomnia [Unknown]
  - Headache [Unknown]
  - Vomiting [Unknown]

NARRATIVE: CASE EVENT DATE: 20230205
